FAERS Safety Report 9769795 (Version 1)
Quarter: 2013Q4

REPORT INFORMATION
  Report Type: Spontaneous
  Country: US (occurrence: None)
  Receive Date: 20131216
  Receipt Date: 20131216
  Transmission Date: 20140711
  Serious: Yes (Hospitalization)
  Sender: FDA-Public Use
  Company Number: US-MDCO-13-00061

PATIENT
  Age: 55 Year
  Sex: Female

DRUGS (2)
  1. ANGIOMAX [Suspect]
     Indication: PERCUTANEOUS CORONARY INTERVENTION
     Dosage: 8 ML (FIRST PCI), INTRAVENOUS BOLUS
     Route: 040
     Dates: start: 20131126, end: 20131126
  2. BRILINTA (TICAGRELOR) (TICAGRELOR) [Concomitant]

REACTIONS (1)
  - Coronary artery thrombosis [None]
